FAERS Safety Report 5931677-7 (Version None)
Quarter: 2008Q4

REPORT INFORMATION
  Report Type: 
  Country: None (occurrence: None)
  Receive Date: 20081009
  Receipt Date: 20080118
  Transmission Date: 20090506
  Serious: Yes (Other)
  Sender: FDA-Public Use
  Company Number: PHEH2008US01034

PATIENT
  Age: 56 Year
  Sex: Female
  Weight: 77.1 kg

DRUGS (8)
  1. ZOMETA [Suspect]
     Dosage: 4 MG EVERY MONTH, INTRAVENOUS
     Route: 042
     Dates: start: 20070517, end: 20080110
  2. SYNTHROID [Concomitant]
  3. ACIPHEX [Concomitant]
  4. FEMARA [Concomitant]
  5. FLUTICASONE W/SALMETEROL (FLUTICASONE, SALMETEROL) [Concomitant]
  6. HYZAAR [Concomitant]
  7. ASPIRIN [Concomitant]
  8. METOPROLOL TARTRATE [Concomitant]

REACTIONS (4)
  - ANXIETY [None]
  - DYSPNOEA [None]
  - HYPERTENSION [None]
  - THROAT TIGHTNESS [None]
